FAERS Safety Report 6669312-5 (Version None)
Quarter: 2010Q2

REPORT INFORMATION
  Report Type: 
  Country: None (occurrence: None)
  Receive Date: 20100406
  Receipt Date: 20100324
  Transmission Date: 20101027
  Serious: No
  Sender: FDA-Public Use
  Company Number: US-B.I. PHARMACEUTICALS,INC./RIDGEFIELD-2010-BP-02003BP

PATIENT
  Sex: Male

DRUGS (6)
  1. FLOMAX [Suspect]
     Indication: PROSTATOMEGALY
     Dosage: 0.4 MG
     Route: 048
     Dates: start: 20050501, end: 20100201
  2. FLOMAX [Suspect]
     Dosage: 0.4 MG
     Route: 048
     Dates: start: 20100201
  3. AVODART [Concomitant]
     Indication: PROSTATIC DISORDER
     Dosage: 0.5 MG
  4. METOPROLOL TARTRATE [Concomitant]
     Indication: CARDIAC DISORDER
     Dosage: 50 MG
  5. COZAAR [Concomitant]
     Dosage: 30 MG
  6. SIMVASTATIN [Concomitant]
     Dosage: 20 MG

REACTIONS (3)
  - DYSURIA [None]
  - MALAISE [None]
  - MUSCLE SPASMS [None]
